FAERS Safety Report 5986008-3 (Version None)
Quarter: 2008Q4

REPORT INFORMATION
  Report Type: 
  Country: None (occurrence: None)
  Receive Date: 20081205
  Receipt Date: 20081205
  Transmission Date: 20090506
  Serious: Yes (Disabling, Other)
  Sender: FDA-Public Use
  Company Number: None

PATIENT
  Age: 60 Year
  Sex: Female
  Weight: 64.4108 kg

DRUGS (1)
  1. RECLAST [Suspect]
     Indication: OSTEOPOROSIS
     Dosage: 5 MG YEARLY IV DRIP
     Route: 041
     Dates: start: 20081030, end: 20081030

REACTIONS (2)
  - IRITIS [None]
  - SCLERITIS [None]
